FAERS Safety Report 8086149-3 (Version None)
Quarter: 2012Q1

REPORT INFORMATION
  Report Type: 
  Country: None (occurrence: None)
  Receive Date: 20120128
  Receipt Date: 20110425
  Transmission Date: 20120608
  Serious: No
  Sender: FDA-Public Use
  Company Number: US-ABBOTT-11P-163-0721718-00

PATIENT
  Sex: Female
  Weight: 41.768 kg

DRUGS (3)
  1. NULEV [Concomitant]
     Indication: GASTROINTESTINAL PAIN
  2. HUMIRA [Suspect]
     Indication: CROHN'S DISEASE
     Dates: start: 20101101
  3. NAPROXEN (ALEVE) [Concomitant]
     Indication: DYSMENORRHOEA

REACTIONS (1)
  - VAGINAL HAEMORRHAGE [None]
